FAERS Safety Report 9299038 (Version 1)
Quarter: 2013Q2

REPORT INFORMATION
  Report Type: Spontaneous
  Country: None (occurrence: JP)
  Receive Date: 20130520
  Receipt Date: 20130520
  Transmission Date: 20140414
  Serious: Yes (Death, Other)
  Sender: FDA-Public Use
  Company Number: JP-TEVA-406170ISR

PATIENT
  Age: 41 Year
  Sex: Male

DRUGS (5)
  1. CISPLATIN [Suspect]
     Indication: NON-SMALL CELL LUNG CANCER
     Dosage: 63 MILLIGRAM DAILY;
     Route: 065
  2. GEMCITABINE [Concomitant]
     Dosage: 1590 MILLIGRAM DAILY;
  3. BENIDIPINE [Concomitant]
     Dosage: 4MG
  4. RABEPRAZOLE [Concomitant]
     Dosage: 10MG
  5. L-CARBOCISTEINE [Concomitant]
     Dosage: 1500MG

REACTIONS (3)
  - Coronary artery thrombosis [Fatal]
  - Acute myocardial infarction [Fatal]
  - Extremity necrosis [Unknown]
